FAERS Safety Report 8607825-7 (Version None)
Quarter: 2012Q3

REPORT INFORMATION
  Report Type: 
  Country: None (occurrence: None)
  Receive Date: 20120821
  Receipt Date: 20120814
  Transmission Date: 20120928
  Serious: Yes (Other)
  Sender: FDA-Public Use
  Company Number: US-JNJFOC-20120711014

PATIENT
  Age: 70 Year
  Sex: Male

DRUGS (1)
  1. NICOTINE [Suspect]
     Indication: TOBACCO ABUSE
     Route: 048
     Dates: start: 20110101

REACTIONS (4)
  - INTENTIONAL DRUG MISUSE [None]
  - THERAPEUTIC RESPONSE UNEXPECTED [None]
  - NICOTINE DEPENDENCE [None]
  - DRUG ADMINISTRATION ERROR [None]
